FAERS Safety Report 6571430-7 (Version None)
Quarter: 2010Q1

REPORT INFORMATION
  Report Type: 
  Country: None (occurrence: None)
  Receive Date: 20100205
  Receipt Date: 20100129
  Transmission Date: 20100710
  Serious: Yes (Other)
  Sender: FDA-Public Use
  Company Number: BR-PFIZER INC-2010012626

PATIENT
  Age: 67 Year
  Sex: Female
  Weight: 70 kg

DRUGS (4)
  1. GABAPENTIN [Suspect]
     Dosage: UNK
  2. LYRICA [Suspect]
     Indication: ARTHRITIS
     Dosage: 75 MG, UNK
  3. LYRICA [Suspect]
     Indication: OSTEOARTHRITIS
  4. FRONTAL [Suspect]

REACTIONS (4)
  - BURNING SENSATION [None]
  - DIZZINESS [None]
  - DRUG HYPERSENSITIVITY [None]
  - LARYNGEAL OEDEMA [None]
